FAERS Safety Report 26087938 (Version 1)
Quarter: 2025Q4

REPORT INFORMATION
  Report Type: Spontaneous
  Country: EU (occurrence: EU)
  Receive Date: 20251125
  Receipt Date: 20251125
  Transmission Date: 20260118
  Serious: Yes (Disabling, Other)
  Sender: ARGENX BVBA
  Company Number: EU-ARGENX-2025-ARGX-GR014822

PATIENT

DRUGS (8)
  1. VYVGART [Suspect]
     Active Substance: EFGARTIGIMOD ALFA-FCAB
     Dosage: LAST TWO CYCLES BATCH NUMBER
     Route: 042
  2. VYVGART [Suspect]
     Active Substance: EFGARTIGIMOD ALFA-FCAB
     Dosage: LAST TWO CYCLES BATCH NUMBER
     Route: 042
  3. VYVGART [Suspect]
     Active Substance: EFGARTIGIMOD ALFA-FCAB
     Indication: Myasthenia gravis
     Dosage: 3 VIALS X 400MG/20ML
     Route: 042
     Dates: start: 20240411, end: 202509
  4. Medithyrox [Concomitant]
     Indication: Hypothyroidism
     Dosage: 62 MG
     Route: 048
     Dates: start: 20230101
  5. MESTINON [Concomitant]
     Active Substance: PYRIDOSTIGMINE BROMIDE
     Indication: Myasthenia gravis
     Dosage: 300 MG
     Route: 048
     Dates: start: 20250101
  6. NEXIUM [Concomitant]
     Active Substance: ESOMEPRAZOLE MAGNESIUM
     Indication: Myasthenia gravis
     Dosage: 20 MG
     Route: 048
     Dates: start: 20230401
  7. PREDNISOLONE [Concomitant]
     Active Substance: PREDNISOLONE
     Indication: Myasthenia gravis
     Dosage: 35 MG
     Route: 065
     Dates: start: 20251103
  8. TRAZODONE HYDROCHLORIDE [Concomitant]
     Active Substance: TRAZODONE HYDROCHLORIDE
     Indication: Depression
     Dosage: 150 MG
     Route: 048
     Dates: start: 20230928

REACTIONS (2)
  - Myasthenia gravis [Recovered/Resolved]
  - Drug ineffective [Unknown]

NARRATIVE: CASE EVENT DATE: 20250801
